FAERS Safety Report 11879027 (Version 2)
Quarter: 2016Q1

REPORT INFORMATION
  Report Type: Spontaneous
  Country: JP (occurrence: JP)
  Receive Date: 20151230
  Receipt Date: 20160203
  Transmission Date: 20160526
  Serious: Yes (Hospitalization)
  Sender: FDA-Public Use
  Company Number: JP-SA-2015SA219183

PATIENT
  Age: 78 Year
  Sex: Female

DRUGS (6)
  1. ELPLAT [Suspect]
     Active Substance: OXALIPLATIN
     Indication: RECTAL CANCER
     Dosage: INJECTION
     Route: 041
  2. ERBITUX [Concomitant]
     Active Substance: CETUXIMAB
  3. ELPLAT [Suspect]
     Active Substance: OXALIPLATIN
     Indication: RECTAL CANCER
     Dosage: INJECTION
     Route: 041
  4. LEVOFOLINATE [Suspect]
     Active Substance: LEVOLEUCOVORIN CALCIUM
     Indication: RECTAL CANCER
     Dosage: INJECTION
     Route: 041
  5. LEVOFOLINATE [Suspect]
     Active Substance: LEVOLEUCOVORIN CALCIUM
     Indication: RECTAL CANCER
     Dosage: INJECTION
     Route: 041
  6. 5-FU [Concomitant]
     Active Substance: FLUOROURACIL

REACTIONS (3)
  - Anorectal varices haemorrhage [Recovered/Resolved]
  - Stomal varices [Recovered/Resolved]
  - Portal hypertension [Recovering/Resolving]
